FAERS Safety Report 9395844 (Version 3)
Quarter: 2013Q4

REPORT INFORMATION
  Report Type: Spontaneous
  Country: DE (occurrence: DE)
  Receive Date: 20130711
  Receipt Date: 20131004
  Transmission Date: 20140711
  Serious: Yes (Hospitalization)
  Sender: FDA-Public Use
  Company Number: DE-ASTRAZENECA-2013SE50762

PATIENT
  Age: 844 Month
  Sex: Male
  Weight: 110 kg

DRUGS (6)
  1. NEXIUM MUPS [Suspect]
     Indication: GASTRITIS
     Route: 048
     Dates: start: 2006, end: 2006
  2. NEXIUM MUPS [Suspect]
     Indication: GASTRITIS
     Route: 048
     Dates: start: 2006, end: 2006
  3. NEXIUM MUPS [Suspect]
     Indication: GASTRITIS
     Dosage: GENERIC
     Route: 048
  4. NEXIUM MUPS [Suspect]
     Indication: GASTRITIS
     Dosage: RE-IMPORT FROM ITALY
     Route: 048
     Dates: start: 201304, end: 2013
  5. NEXIUM MUPS [Suspect]
     Indication: GASTRITIS
     Dosage: RE-IMPORT FROM ITALY
     Route: 048
     Dates: start: 2013
  6. ALFUZOSIN [Concomitant]
     Indication: BENIGN PROSTATIC HYPERPLASIA

REACTIONS (3)
  - Abdominal discomfort [Recovered/Resolved]
  - Condition aggravated [Unknown]
  - Drug ineffective [Unknown]
